FAERS Safety Report 6728389-9 (Version None)
Quarter: 2010Q2

REPORT INFORMATION
  Report Type: 
  Country: None (occurrence: None)
  Receive Date: 20100517
  Receipt Date: 20100507
  Transmission Date: 20101027
  Serious: Yes (Death, Hospitalization)
  Sender: FDA-Public Use
  Company Number: ES-SANOFI-AVENTIS-2010SA026775

PATIENT
  Age: 57 Year
  Sex: Male

DRUGS (16)
  1. OXALIPLATIN [Suspect]
     Route: 042
     Dates: start: 20090722, end: 20090722
  2. OXALIPLATIN [Suspect]
     Route: 042
     Dates: start: 20100310, end: 20100310
  3. INVESTIGATIONAL DRUG [Suspect]
     Route: 042
     Dates: start: 20090722, end: 20090722
  4. INVESTIGATIONAL DRUG [Suspect]
     Route: 042
     Dates: start: 20100310, end: 20100310
  5. FLUOROURACIL [Suspect]
     Route: 040
     Dates: start: 20090722, end: 20090722
  6. FLUOROURACIL [Suspect]
     Route: 041
     Dates: start: 20090722, end: 20090722
  7. FLUOROURACIL [Suspect]
     Route: 040
     Dates: start: 20100310, end: 20100310
  8. FLUOROURACIL [Suspect]
     Route: 041
     Dates: start: 20100310, end: 20100310
  9. FOLINIC ACID [Suspect]
     Route: 042
     Dates: start: 20090722, end: 20090722
  10. FOLINIC ACID [Suspect]
     Route: 042
     Dates: start: 20100310, end: 20100310
  11. IBUPROFEN [Concomitant]
     Dates: start: 20091118
  12. METAMIZOLE [Concomitant]
     Dates: start: 20100120
  13. AUGMENTIN '125' [Concomitant]
     Indication: COUGH
     Dates: start: 20100120, end: 20100130
  14. AUGMENTIN '125' [Concomitant]
     Dates: start: 20100324
  15. PLANTABEN [Concomitant]
     Dates: start: 20100203
  16. VALIUM [Concomitant]

REACTIONS (1)
  - DEATH [None]
